FAERS Safety Report 21707728 (Version 1)
Quarter: 2022Q4

REPORT INFORMATION
  Report Type: Report from Study
  Country: US (occurrence: US)
  Receive Date: 20221209
  Receipt Date: 20221209
  Transmission Date: 20230112
  Serious: No
  Sender: FDA-Public Use
  Company Number: US-002147023-NVSC2022US284888

PATIENT
  Age: 79 Year
  Sex: Female

DRUGS (1)
  1. AFINITOR [Suspect]
     Active Substance: EVEROLIMUS
     Indication: Product used for unknown indication
     Dosage: 5 MG, PRN
     Route: 048
     Dates: start: 20221128

REACTIONS (2)
  - Epistaxis [Unknown]
  - Nasal congestion [Unknown]

NARRATIVE: CASE EVENT DATE: 20221205
